FAERS Safety Report 7749641 (Version 8)
Quarter: 2017Q2

REPORT INFORMATION
  Report Type: Spontaneous
  Country: FR (occurrence: FR)
  Receive Date: 20110105
  Receipt Date: 20170508
  Transmission Date: 20170830
  Serious: Yes (Life-Threatening, Hospitalization, Disabling, Other)
  Sender: FDA-Public Use
  Company Number: FR-PFIZER INC-2011000250

PATIENT
  Age: 65 Year
  Sex: Male
  Weight: 110 kg

DRUGS (6)
  1. FELDENE [Suspect]
     Active Substance: PIROXICAM
     Indication: BACK PAIN
  2. FELDENE [Suspect]
     Active Substance: PIROXICAM
     Indication: OSTEOARTHRITIS
     Dosage: 20 MG, 1X/DAY
     Route: 048
     Dates: start: 20101205, end: 20101206
  3. BIPRETERAX [Concomitant]
     Active Substance: INDAPAMIDE\PERINDOPRIL
     Indication: HYPERTENSION
     Dosage: 4 MG/1.25 MG  1X/DAY
     Route: 048
     Dates: start: 2002
  4. TEMESTA [Concomitant]
     Active Substance: LORAZEPAM
     Indication: HYPERTENSION
     Dosage: 1 MG, 1X/DAY
     Route: 048
     Dates: start: 2002
  5. NOCTRAN 10 [Concomitant]
     Active Substance: ACEPROMAZINE\ACEPROMETAZINE\CLORAZEPATE DIPOTASSIUM
     Indication: HYPERTENSION
     Dosage: 10 MG, 1X/DAY
  6. NOCTAMID [Concomitant]
     Active Substance: LORMETAZEPAM
     Dosage: 1 MG, 1X/DAY
     Dates: start: 2002

REACTIONS (14)
  - Angina pectoris [Recovered/Resolved]
  - Pancytopenia [Recovered/Resolved]
  - Gastrointestinal haemorrhage [Recovered/Resolved]
  - Melaena [Recovered/Resolved]
  - Hypersplenism [Unknown]
  - Reticulocyte count decreased [Recovered/Resolved]
  - Hepatic steatosis [Unknown]
  - Toxicity to various agents [Recovering/Resolving]
  - Malaise [Recovering/Resolving]
  - Mental disorder [Unknown]
  - Haematoma [Recovered/Resolved]
  - Anxiety [Unknown]
  - Bone marrow failure [Recovered/Resolved]
  - Loss of consciousness [Recovering/Resolving]

NARRATIVE: CASE EVENT DATE: 20101207
